FAERS Safety Report 9806328 (Version 2)
Quarter: 2014Q1

REPORT INFORMATION
  Report Type: Spontaneous
  Country: FR (occurrence: FR)
  Receive Date: 20140109
  Receipt Date: 20140109
  Transmission Date: 20141002
  Serious: Yes (Other)
  Sender: FDA-Public Use
  Company Number: FR-ABBVIE-13P-056-1167524-00

PATIENT
  Sex: Female

DRUGS (1)
  1. TARKA LP [Suspect]
     Indication: TACHYCARDIA
     Route: 048

REACTIONS (4)
  - Toxic skin eruption [Unknown]
  - Pyrexia [Recovered/Resolved]
  - Eosinophilic cellulitis [Unknown]
  - Generalised erythema [Recovered/Resolved]
